FAERS Safety Report 4278120-4 (Version None)
Quarter: 2004Q1

REPORT INFORMATION
  Report Type: 
  Country: None (occurrence: None)
  Receive Date: 20040123
  Receipt Date: 20040119
  Transmission Date: 20041129
  Serious: Yes (Other)
  Sender: FDA-Public Use
  Company Number: WAES 0401GBR00146

PATIENT

DRUGS (1)
  1. VIOXX [Suspect]
     Route: 048

REACTIONS (1)
  - LARGE INTESTINE PERFORATION [None]
